FAERS Safety Report 15876055 (Version 5)
Quarter: 2019Q1

REPORT INFORMATION
  Report Type: Spontaneous
  Country: JP (occurrence: JP)
  Receive Date: 20190126
  Receipt Date: 20190227
  Transmission Date: 20190417
  Serious: Yes (Hospitalization)
  Sender: FDA-Public Use
  Company Number: PHJP2019JP001099

PATIENT
  Age: 72 Year
  Sex: Female

DRUGS (1)
  1. VOTRIENT [Suspect]
     Active Substance: PAZOPANIB HYDROCHLORIDE
     Indication: UTERINE LEIOMYOSARCOMA
     Dosage: UNK
     Route: 048
     Dates: end: 20190122

REACTIONS (8)
  - Joint swelling [Unknown]
  - Enterocolitis [Unknown]
  - Dermatitis [Unknown]
  - Thyroid disorder [Unknown]
  - Hepatic failure [Recovering/Resolving]
  - Arthralgia [Unknown]
  - Toothache [Unknown]
  - Nephrotic syndrome [Unknown]

NARRATIVE: CASE EVENT DATE: 20190122
